FAERS Safety Report 5381908-X (Version None)
Quarter: 2007Q3

REPORT INFORMATION
  Report Type: 
  Country: None (occurrence: None)
  Receive Date: 20070709
  Receipt Date: 20070628
  Transmission Date: 20080115
  Serious: Yes (Other)
  Sender: FDA-Public Use
  Company Number: CN-ASTRAZENECA-2007AP03972

PATIENT
  Age: 21 Year
  Sex: Female

DRUGS (2)
  1. PROPOFOL [Suspect]
     Indication: ANAESTHESIA
     Route: 042
     Dates: start: 20061122, end: 20061122
  2. OXYTOCIN [Suspect]
     Indication: UTERUS EVACUATION
     Route: 030
     Dates: start: 20061122, end: 20061122

REACTIONS (5)
  - COLD SWEAT [None]
  - DIZZINESS [None]
  - HEADACHE [None]
  - LOSS OF CONSCIOUSNESS [None]
  - MALAISE [None]
